FAERS Safety Report 5730367-3 (Version None)
Quarter: 2008Q2

REPORT INFORMATION
  Report Type: 
  Country: None (occurrence: None)
  Receive Date: 20080502
  Receipt Date: 20080423
  Transmission Date: 20081010
  Serious: Yes (Death)
  Sender: FDA-Public Use
  Company Number: A-CH2008-20339

PATIENT
  Age: 59 Year
  Sex: Male
  Weight: 94 kg

DRUGS (10)
  1. TRACLEER [Suspect]
     Indication: PULMONARY HYPERTENSION
     Dosage: 125 MG, BID, ORAL; 62.5 MG, BID, ORAL
     Route: 048
     Dates: start: 20031112, end: 20031212
  2. TRACLEER [Suspect]
     Indication: PULMONARY HYPERTENSION
     Dosage: 125 MG, BID, ORAL; 62.5 MG, BID, ORAL
     Route: 048
     Dates: start: 20031213, end: 20080415
  3. AMLODIPINE BESYLATE [Concomitant]
  4. RANITIDINE HCL [Concomitant]
  5. LANOXIM (DIGOXIN) [Concomitant]
  6. SIPRALEXA (ESCITALOPRAM) [Concomitant]
  7. SINTROM [Concomitant]
  8. NOVONORM (REPAGLINIDE) [Concomitant]
  9. LASIX [Concomitant]
  10. MIXTARD (INSULIN HUMAN INJECTION, ISOPHANE) [Concomitant]

REACTIONS (1)
  - CARDIAC FAILURE [None]
